FAERS Safety Report 8471603-2 (Version None)
Quarter: 2012Q2

REPORT INFORMATION
  Report Type: 
  Country: None (occurrence: None)
  Receive Date: 20120323
  Receipt Date: 20111114
  Transmission Date: 20120825
  Serious: Yes (Other)
  Sender: FDA-Public Use
  Company Number: 163-21880-11100170

PATIENT
  Age: 68 Year
  Sex: Female
  Weight: 80.7 kg

DRUGS (3)
  1. REVLIMID [Suspect]
  2. REVLIMID [Suspect]
     Indication: MULTIPLE MYELOMA
     Dosage: 10 MG, 1 IN 1 D, PO, 5 MG, 1 IN 1 D, PO
     Route: 048
     Dates: start: 20111101
  3. REVLIMID [Suspect]
     Indication: MULTIPLE MYELOMA
     Dosage: 10 MG, 1 IN 1 D, PO, 5 MG, 1 IN 1 D, PO
     Route: 048
     Dates: start: 20110902

REACTIONS (7)
  - INFLUENZA [None]
  - FATIGUE [None]
  - FULL BLOOD COUNT DECREASED [None]
  - DYSPNOEA [None]
  - RENAL DISORDER [None]
  - RASH [None]
  - DIARRHOEA [None]
